FAERS Safety Report 10227715 (Version 1)
Quarter: 2014Q2

REPORT INFORMATION
  Report Type: Spontaneous
  Country: US (occurrence: US)
  Receive Date: 20140610
  Receipt Date: 20140610
  Transmission Date: 20141212
  Serious: No
  Sender: FDA-Public Use
  Company Number: US-PFIZER INC-2014155215

PATIENT
  Sex: Female

DRUGS (3)
  1. AMLODIPINE [Suspect]
     Indication: BLOOD PRESSURE ABNORMAL
     Dosage: UNK
     Dates: start: 2010
  2. LYRICA [Suspect]
     Indication: FIBROMYALGIA
     Dosage: UNK
     Dates: start: 2010
  3. CELEBREX [Suspect]
     Indication: ARTHRALGIA
     Dosage: UNK
     Dates: start: 2010

REACTIONS (3)
  - Constipation [Unknown]
  - Peripheral swelling [Unknown]
  - Discomfort [Unknown]
